FAERS Safety Report 7227461 (Version 2)
Quarter: 2015Q1

REPORT INFORMATION
  Report Type: Spontaneous
  Country: US (occurrence: US)
  Receive Date: 20091222
  Receipt Date: 20150121
  Transmission Date: 20150721
  Serious: No
  Sender: FDA-Public Use
  Company Number: US-ASTRAZENECA-2009UW10068

PATIENT
  Age: 1017 Month
  Sex: Female
  Weight: 61.2 kg

DRUGS (11)
  1. CRESTOR [Suspect]
     Active Substance: ROSUVASTATIN CALCIUM
     Indication: BLOOD CHOLESTEROL INCREASED
     Route: 048
  2. LOTREL [Concomitant]
     Active Substance: AMLODIPINE BESYLATE\BENAZEPRIL HYDROCHLORIDE
     Indication: HYPERTENSION
  3. VASOTEC [Concomitant]
     Active Substance: ENALAPRIL MALEATE
  4. PLAVIX [Concomitant]
     Active Substance: CLOPIDOGREL BISULFATE
     Dates: end: 2014
  5. ALBUTEROL INHALER [Concomitant]
     Active Substance: ALBUTEROL
  6. METFORMIN [Concomitant]
     Active Substance: METFORMIN HYDROCHLORIDE
     Indication: DIABETES MELLITUS
  7. FOSAMAX [Concomitant]
     Active Substance: ALENDRONATE SODIUM
  8. CRESTOR [Suspect]
     Active Substance: ROSUVASTATIN CALCIUM
     Indication: BLOOD CHOLESTEROL INCREASED
     Route: 048
     Dates: start: 201410
  9. BISTOLIC [Concomitant]
     Indication: HYPERTENSION
     Route: 048
  10. ASPIRIN. [Concomitant]
     Active Substance: ASPIRIN
     Indication: CARDIAC DISORDER
     Route: 048
  11. FLOVENT [Concomitant]
     Active Substance: FLUTICASONE PROPIONATE

REACTIONS (7)
  - Nasal congestion [Unknown]
  - Food allergy [Unknown]
  - Nausea [Recovering/Resolving]
  - Sneezing [Unknown]
  - Rhinorrhoea [Unknown]
  - Immobile [Recovering/Resolving]
  - Myalgia [Recovering/Resolving]

NARRATIVE: CASE EVENT DATE: 200901
